FAERS Safety Report 8574049-1 (Version None)
Quarter: 2012Q3

REPORT INFORMATION
  Report Type: 
  Country: None (occurrence: None)
  Receive Date: 20120806
  Receipt Date: 20110131
  Transmission Date: 20120928
  Serious: Yes (Other)
  Sender: FDA-Public Use
  Company Number: DE-CELGENEUS-062-21880-12060646

PATIENT
  Age: 64 Year
  Sex: Female
  Weight: 80 kg

DRUGS (13)
  1. DEXAMETHASONE [Concomitant]
     Indication: MULTIPLE MYELOMA
     Route: 065
     Dates: start: 20100121
  2. DEXAMETHASONE [Concomitant]
     Route: 065
     Dates: start: 20110217, end: 20110930
  3. DARBOPOETIN ALFA [Concomitant]
     Route: 065
     Dates: start: 20100219, end: 20100219
  4. IMMUNE GLOBULIN NOS [Concomitant]
     Route: 065
     Dates: start: 20111124
  5. RED BLOOD CELLS [Concomitant]
     Dosage: 2 UNITS
     Route: 065
  6. AMOXICILLIN [Concomitant]
     Route: 065
  7. REVLIMID [Suspect]
     Indication: MULTIPLE MYELOMA
     Dosage: 10 MILLIGRAM
     Route: 048
     Dates: start: 20100121
  8. DARBOPOETIN ALFA [Concomitant]
     Route: 065
     Dates: start: 20100121, end: 20100121
  9. REVLIMID [Suspect]
     Route: 048
     Dates: end: 20100930
  10. BORTEZOMIB [Concomitant]
     Route: 065
     Dates: start: 20111124
  11. ZOLEDRONIC ACID [Concomitant]
     Route: 065
  12. HEPARIN [Concomitant]
     Route: 065
  13. ACETYLSALICYLIC ACID [Concomitant]
     Route: 065

REACTIONS (11)
  - DIARRHOEA [None]
  - THROMBOCYTOPENIA [None]
  - MULTIPLE MYELOMA [None]
  - PERIPHERAL SENSORY NEUROPATHY [None]
  - INFECTION [None]
  - VISION BLURRED [None]
  - INTESTINAL HAEMORRHAGE [None]
  - ANAEMIA [None]
  - RETINAL DISORDER [None]
  - FLATULENCE [None]
  - HYPERHIDROSIS [None]
